FAERS Safety Report 18349650 (Version 2)
Quarter: 2020Q4

REPORT INFORMATION
  Report Type: Spontaneous
  Country: FR (occurrence: FR)
  Receive Date: 20201006
  Receipt Date: 20201020
  Transmission Date: 20210114
  Serious: Yes (Other)
  Sender: FDA-Public Use
  Company Number: FR-TEVA-2020-FR-1835365

PATIENT
  Age: 70 Year
  Sex: Male

DRUGS (5)
  1. PACLITAXEL. [Suspect]
     Active Substance: PACLITAXEL
     Indication: SMALL CELL LUNG CANCER
     Route: 065
  2. KETOCONAZOLE. [Interacting]
     Active Substance: KETOCONAZOLE
     Indication: HYPERADRENOCORTICISM
     Dosage: 1200 MILLIGRAM DAILY;
     Route: 065
  3. METYRAPONE [Concomitant]
     Active Substance: METYRAPONE
     Indication: HYPERADRENOCORTICISM
     Route: 065
  4. OSILODROSTAT [Suspect]
     Active Substance: OSILODROSTAT
     Indication: HYPERADRENOCORTICISM
     Dosage: 1 MILLIGRAM DAILY;
     Route: 065
  5. OSILODROSTAT [Suspect]
     Active Substance: OSILODROSTAT
     Dosage: 4 MILLIGRAM DAILY; OVER 14 DAYS
     Route: 065

REACTIONS (4)
  - Cortisol increased [Recovered/Resolved]
  - Drug interaction [Unknown]
  - Rebound effect [Recovered/Resolved]
  - Hepatitis [Unknown]
